FAERS Safety Report 11796896 (Version 2)
Quarter: 2016Q1

REPORT INFORMATION
  Report Type: Spontaneous
  Country: GB (occurrence: GB)
  Receive Date: 20151203
  Receipt Date: 20160128
  Transmission Date: 20160525
  Serious: Yes (Other)
  Sender: FDA-Public Use
  Company Number: GB-WATSON-2015-25793

PATIENT
  Age: 37 Year
  Sex: Female

DRUGS (6)
  1. PREDNISOLONE (UNKNOWN) [Suspect]
     Active Substance: PREDNISOLONE
     Indication: INFLAMMATION
     Dosage: UNK
     Route: 065
  2. DIPIPANONE [Suspect]
     Active Substance: DIPIPANONE HYDROCHLORIDE
     Indication: PAIN
     Dosage: 2 DF, QID
     Route: 048
  3. CYCLIZINE (UNKNOWN) [Suspect]
     Active Substance: CYCLIZINE
     Indication: PAIN
     Dosage: UNK
     Route: 065
  4. DIPIPANONE [Suspect]
     Active Substance: DIPIPANONE HYDROCHLORIDE
     Dosage: 1 DF, QID
     Route: 048
  5. LYRICA [Concomitant]
     Active Substance: PREGABALIN
     Indication: NEURALGIA
     Dosage: UNK
     Route: 065
  6. CYCLIZINE (UNKNOWN) [Suspect]
     Active Substance: CYCLIZINE
     Dosage: UNK
     Route: 065

REACTIONS (7)
  - Osteoporosis [Unknown]
  - Spinal compression fracture [Unknown]
  - Pain [Unknown]
  - Off label use [Unknown]
  - Spinal fracture [Unknown]
  - Bone disorder [Unknown]
  - Intentional product misuse [Unknown]
